FAERS Safety Report 7307077-4 (Version None)
Quarter: 2011Q1

REPORT INFORMATION
  Report Type: 
  Country: None (occurrence: None)
  Receive Date: 20110223
  Receipt Date: 20110209
  Transmission Date: 20110831
  Serious: No
  Sender: FDA-Public Use
  Company Number: US-BIOGENIDEC-2011BI005949

PATIENT
  Age: 61 Year
  Sex: Male

DRUGS (3)
  1. AVONEX [Concomitant]
     Indication: MULTIPLE SCLEROSIS
     Route: 030
     Dates: start: 20060101
  2. AVONEX [Concomitant]
     Route: 030
     Dates: start: 20000301, end: 20051101
  3. TYSABRI [Suspect]
     Indication: MULTIPLE SCLEROSIS
     Route: 042
     Dates: start: 20100414, end: 20110105

REACTIONS (3)
  - MALAISE [None]
  - MUSCLE SPASMS [None]
  - HEADACHE [None]
